FAERS Safety Report 25488645 (Version 2)
Quarter: 2025Q3

REPORT INFORMATION
  Report Type: Spontaneous
  Country: US (occurrence: US)
  Receive Date: 20250627
  Receipt Date: 20250717
  Transmission Date: 20251021
  Serious: Yes (Other)
  Sender: MERCK SHARP & DOHME LLC
  Company Number: US-009507513-2298502

PATIENT
  Sex: Female
  Weight: 77.1 kg

DRUGS (21)
  1. SOTATERCEPT [Suspect]
     Active Substance: SOTATERCEPT
     Indication: Product used for unknown indication
     Dates: end: 2025
  2. SOTATERCEPT [Suspect]
     Active Substance: SOTATERCEPT
  3. SOTATERCEPT [Suspect]
     Active Substance: SOTATERCEPT
  4. SOTATERCEPT [Suspect]
     Active Substance: SOTATERCEPT
  5. ORENITRAM [Suspect]
     Active Substance: TREPROSTINIL
     Indication: Pulmonary arterial hypertension
     Dosage: 1.25 MG, Q8H
     Route: 048
     Dates: start: 202504, end: 202504
  6. FAMOTIDINE [Concomitant]
     Active Substance: FAMOTIDINE
  7. SENNA S [Concomitant]
     Active Substance: DOCUSATE SODIUM\SENNOSIDES
  8. ACETAMINOPHEN [Concomitant]
     Active Substance: ACETAMINOPHEN
  9. OPSUMIT [Concomitant]
     Active Substance: MACITENTAN
  10. PROTONIX [Concomitant]
     Active Substance: PANTOPRAZOLE SODIUM
  11. RIVAROXABAN [Concomitant]
     Active Substance: RIVAROXABAN
  12. LORAZEPAM [Concomitant]
     Active Substance: LORAZEPAM
  13. SILDENAFIL CITRATE [Concomitant]
     Active Substance: SILDENAFIL CITRATE
  14. Glucagon HCL [Concomitant]
  15. CHLORHEXIDINE GLUCONATE [Concomitant]
     Active Substance: CHLORHEXIDINE GLUCONATE
  16. MIRTAZAPINE [Concomitant]
     Active Substance: MIRTAZAPINE
  17. DEXTROSE\WATER [Concomitant]
     Active Substance: DEXTROSE\WATER
  18. Sodium chloride;Water [Concomitant]
  19. CYCLOBENZAPRINE HYDROCHLORIDE [Concomitant]
     Active Substance: CYCLOBENZAPRINE HYDROCHLORIDE
  20. INSULIN LISPRO [Concomitant]
     Active Substance: INSULIN LISPRO
  21. ONDANSETRON HYDROCHLORIDE [Concomitant]
     Active Substance: ONDANSETRON HYDROCHLORIDE

REACTIONS (2)
  - Intensive care [Unknown]
  - Drug ineffective [Unknown]

NARRATIVE: CASE EVENT DATE: 20250101
